FAERS Safety Report 5798075-0 (Version None)
Quarter: 2008Q2

REPORT INFORMATION
  Report Type: 
  Country: None (occurrence: None)
  Receive Date: 20080620
  Receipt Date: 20080229
  Transmission Date: 20081010
  Serious: Yes (Other)
  Sender: FDA-Public Use
  Company Number: 14097935

PATIENT
  Sex: Female
  Weight: 63.49 kg

DRUGS (12)
  1. EMSAM [Suspect]
     Indication: DEPRESSION
     Dosage: 40 MILLIGRAM,1 DAY
     Dates: start: 20080201, end: 20080201
  2. BUTALBITAL ACETAMINOPHEN AND CAFFEINE [Concomitant]
  3. ENALAPRIL [Concomitant]
  4. HYDROCHLOROTHIAZIDE [Concomitant]
  5. MUCINEX [Concomitant]
  6. RHINOCORT [Concomitant]
  7. MIACALCIN [Concomitant]
  8. TOPAMAX [Concomitant]
  9. DIAZEPAM [Concomitant]
  10. ADVAIR DISKUS 100/50 [Concomitant]
  11. PRO-AIR [Concomitant]
  12. OPTIVAR [Concomitant]

REACTIONS (7)
  - BLOOD PRESSURE INCREASED [None]
  - DYSPNOEA [None]
  - FEELING HOT [None]
  - HEADACHE [None]
  - HEART RATE INCREASED [None]
  - INSOMNIA [None]
  - PALPITATIONS [None]
